FAERS Safety Report 16408410 (Version 2)
Quarter: 2019Q3

REPORT INFORMATION
  Report Type: Spontaneous
  Country: US (occurrence: US)
  Receive Date: 20190610
  Receipt Date: 20190806
  Transmission Date: 20191004
  Serious: Yes (Hospitalization, Other)
  Sender: FDA-Public Use
  Company Number: US-GLAXOSMITHKLINE-US2019AMR102372

PATIENT
  Sex: Male

DRUGS (1)
  1. TRELEGY ELLIPTA [Suspect]
     Active Substance: FLUTICASONE FUROATE\UMECLIDINIUM BROMIDE\VILANTEROL TRIFENATATE
     Indication: PRODUCT USED FOR UNKNOWN INDICATION
     Dosage: 100/62.5/25 ?G
     Route: 055
     Dates: start: 2018

REACTIONS (8)
  - Lung disorder [Unknown]
  - Medical induction of coma [Recovered/Resolved]
  - Gait inability [Unknown]
  - Pneumonia cryptococcal [Unknown]
  - Sepsis [Unknown]
  - Pneumonia streptococcal [Unknown]
  - Lung abscess [Unknown]
  - Atrophy [Unknown]
